FAERS Safety Report 18756172 (Version 1)
Quarter: 2021Q1

REPORT INFORMATION
  Report Type: Spontaneous
  Country: US (occurrence: US)
  Receive Date: 20210117
  Receipt Date: 20210117
  Transmission Date: 20210419
  Serious: Yes (Life-Threatening, Hospitalization, Disabling)
  Sender: FDA-Public Use
  Company Number: None

PATIENT
  Age: 22 Year
  Sex: Male
  Weight: 69.75 kg

DRUGS (1)
  1. PROPECIA [Suspect]
     Active Substance: FINASTERIDE
     Indication: SKIN COSMETIC PROCEDURE
     Dates: end: 20210101

REACTIONS (5)
  - Panic attack [None]
  - Erectile dysfunction [None]
  - Loss of libido [None]
  - Sexual dysfunction [None]
  - Suicidal ideation [None]
